FAERS Safety Report 10095460 (Version 2)
Quarter: 2015Q2

REPORT INFORMATION
  Report Type: Spontaneous
  Country: US (occurrence: US)
  Receive Date: 20140422
  Receipt Date: 20150602
  Transmission Date: 20150821
  Serious: Yes (Hospitalization)
  Sender: FDA-Public Use
  Company Number: US-BAYER-2014-056798

PATIENT
  Age: 41 Year
  Sex: Female

DRUGS (10)
  1. OCELLA [Suspect]
     Active Substance: DROSPIRENONE\ETHINYL ESTRADIOL
     Dosage: UNK
     Dates: start: 20070706, end: 20100428
  2. MECLIZINE [Concomitant]
     Active Substance: MECLIZINE\MECLIZINE HYDROCHLORIDE
     Indication: VERTIGO
     Dosage: 25 MG, 2 TIMES A DAY AS NEEDED
     Route: 048
  3. PHENAZOPYRIDINE. [Concomitant]
     Active Substance: PHENAZOPYRIDINE
     Dosage: 200 MG, UNK
  4. GIANVI [Suspect]
     Active Substance: DROSPIRENONE\ETHINYL ESTRADIOL
     Dosage: UNK
     Dates: start: 20070706, end: 20100428
  5. YAZ [Suspect]
     Active Substance: DROSPIRENONE\ETHINYL ESTRADIOL
     Dosage: UNK
     Dates: start: 20070706, end: 20100428
  6. YASMIN [Suspect]
     Active Substance: DROSPIRENONE\ETHINYL ESTRADIOL
     Dosage: UNK
     Dates: start: 20070706, end: 20100428
  7. NITROFURANTOIN. [Concomitant]
     Active Substance: NITROFURANTOIN
  8. PHENAZOPYRIDINE. [Concomitant]
     Active Substance: PHENAZOPYRIDINE
  9. FENTANYL. [Concomitant]
     Active Substance: FENTANYL
  10. VERSED [Concomitant]
     Active Substance: MIDAZOLAM HYDROCHLORIDE

REACTIONS (5)
  - Basilar artery thrombosis [None]
  - Pain [Recovering/Resolving]
  - Brain stem stroke [Recovering/Resolving]
  - Emotional distress [None]
  - Injury [Recovering/Resolving]

NARRATIVE: CASE EVENT DATE: 20100428
